FAERS Safety Report 11760462 (Version 1)
Quarter: 2015Q4

REPORT INFORMATION
  Report Type: Spontaneous
  Country: US (occurrence: US)
  Receive Date: 20151120
  Receipt Date: 20151120
  Transmission Date: 20160304
  Serious: Yes (Hospitalization, Other)
  Sender: FDA-Public Use
  Company Number: US-AMGEN-USASP2015120876

PATIENT
  Age: 62 Year
  Sex: Male

DRUGS (1)
  1. ENBREL [Suspect]
     Active Substance: ETANERCEPT
     Indication: PRODUCT USED FOR UNKNOWN INDICATION
     Dosage: UNK UNK, UNK
     Route: 065
     Dates: start: 1995

REACTIONS (9)
  - Memory impairment [Unknown]
  - Logorrhoea [Unknown]
  - Malaise [Unknown]
  - Psoriatic arthropathy [Unknown]
  - Candida infection [Unknown]
  - Immune system disorder [Unknown]
  - Arthritis [Unknown]
  - Rheumatoid arthritis [Unknown]
  - Influenza [Unknown]

NARRATIVE: CASE EVENT DATE: 20141230
